FAERS Safety Report 15400684 (Version 2)
Quarter: 2018Q3

REPORT INFORMATION
  Report Type: Report from Study
  Country: CA (occurrence: CA)
  Receive Date: 20180919
  Receipt Date: 20180924
  Transmission Date: 20181010
  Serious: Yes (Other)
  Sender: FDA-Public Use
  Company Number: CA-ROCHE-2089211

PATIENT
  Age: 35 Year
  Sex: Female

DRUGS (1)
  1. OCREVUS [Suspect]
     Active Substance: OCRELIZUMAB
     Indication: RELAPSING-REMITTING MULTIPLE SCLEROSIS
     Dosage: INITIAL DOSE?DAY 0 AND DAY 14, THEN 600 MG EVERY 6 MONTH
     Route: 042
     Dates: start: 20180301

REACTIONS (11)
  - Muscle spasticity [Unknown]
  - Insomnia [Recovered/Resolved]
  - Fatigue [Recovering/Resolving]
  - Migraine [Recovered/Resolved]
  - Fatigue [Unknown]
  - Emotional disorder [Recovered/Resolved]
  - Hypoaesthesia [Recovering/Resolving]
  - Blood oestrogen decreased [Unknown]
  - Anxiety [Recovering/Resolving]
  - Irritability [Recovering/Resolving]
  - Arthropathy [Unknown]

NARRATIVE: CASE EVENT DATE: 20180308
